FAERS Safety Report 19001256 (Version 2)
Quarter: 2021Q2

REPORT INFORMATION
  Report Type: Spontaneous
  Country: US (occurrence: US)
  Receive Date: 20210311
  Receipt Date: 20210421
  Transmission Date: 20210717
  Serious: No
  Sender: FDA-Public Use
  Company Number: US-JNJFOC-20210314538

PATIENT
  Age: 73 Year
  Sex: Male
  Weight: 138 kg

DRUGS (1)
  1. SIMPONI ARIA [Suspect]
     Active Substance: GOLIMUMAB
     Indication: RHEUMATOID ARTHRITIS
     Route: 042

REACTIONS (2)
  - Product prescribing error [Unknown]
  - Rash [Unknown]

NARRATIVE: CASE EVENT DATE: 20210308
